FAERS Safety Report 18355613 (Version 1)
Quarter: 2020Q4

REPORT INFORMATION
  Report Type: Spontaneous
  Country: US (occurrence: US)
  Receive Date: 20201007
  Receipt Date: 20201007
  Transmission Date: 20210114
  Serious: No
  Sender: FDA-Public Use
  Company Number: None

PATIENT
  Age: 69 Year
  Sex: Male
  Weight: 58.51 kg

DRUGS (7)
  1. SIKLOS [Suspect]
     Active Substance: HYDROXYUREA
     Route: 048
     Dates: start: 20200916, end: 20200928
  2. DIAZEPAM. [Concomitant]
     Active Substance: DIAZEPAM
  3. TOBRAMYCIN-DEXAMETHASONE [Concomitant]
     Active Substance: DEXAMETHASONE\TOBRAMYCIN
  4. OMEGA 3 500 [Concomitant]
  5. VITAMIN D (ERGOCALCIFEROL) [Concomitant]
     Active Substance: ERGOCALCIFEROL
  6. ASPIRIN 81 [Concomitant]
     Active Substance: ASPIRIN
  7. CYANOCOBALAMIN. [Concomitant]
     Active Substance: CYANOCOBALAMIN

REACTIONS (6)
  - Influenza like illness [None]
  - Decreased appetite [None]
  - Dehydration [None]
  - SARS-CoV-2 test negative [None]
  - Hyperhidrosis [None]
  - Vomiting [None]

NARRATIVE: CASE EVENT DATE: 20200928
